FAERS Safety Report 15810123 (Version 1)
Quarter: 2019Q1

REPORT INFORMATION
  Report Type: Spontaneous
  Country: US (occurrence: US)
  Receive Date: 20190111
  Receipt Date: 20190111
  Transmission Date: 20190417
  Serious: Yes (Other)
  Sender: FDA-Public Use
  Company Number: US-ROCHE-2158783

PATIENT
  Age: 25 Year
  Sex: Female

DRUGS (2)
  1. RITUXIMAB. [Suspect]
     Active Substance: RITUXIMAB
     Indication: PARANEOPLASTIC PEMPHIGUS
     Route: 065
  2. CYCLOSPORINE. [Suspect]
     Active Substance: CYCLOSPORINE
     Indication: PARANEOPLASTIC PEMPHIGUS
     Route: 065

REACTIONS (5)
  - Scedosporium infection [Not Recovered/Not Resolved]
  - Hypogammaglobulinaemia [Recovering/Resolving]
  - Respiratory tract infection bacterial [Not Recovered/Not Resolved]
  - Mycobacterium fortuitum infection [Not Recovered/Not Resolved]
  - Respiratory tract infection viral [Not Recovered/Not Resolved]
